FAERS Safety Report 20540640 (Version 1)
Quarter: 2022Q1

REPORT INFORMATION
  Report Type: Spontaneous
  Country: AU (occurrence: AU)
  Receive Date: 20220302
  Receipt Date: 20220302
  Transmission Date: 20220423
  Serious: Yes (Other)
  Sender: FDA-Public Use
  Company Number: AU-JNJFOC-20210944770

PATIENT
  Age: 19 Year
  Sex: Female

DRUGS (2)
  1. RISPERDAL [Suspect]
     Active Substance: RISPERIDONE
     Indication: Product used for unknown indication
     Route: 065
  2. SEROQUEL [Suspect]
     Active Substance: QUETIAPINE FUMARATE
     Indication: Product used for unknown indication
     Route: 065
     Dates: start: 2007, end: 2007

REACTIONS (5)
  - Suicide attempt [Unknown]
  - Constipation [Unknown]
  - Insomnia [Unknown]
  - Muscular weakness [Recovered/Resolved with Sequelae]
  - Coating in mouth [Unknown]

NARRATIVE: CASE EVENT DATE: 20070101
